FAERS Safety Report 7335908-0 (Version None)
Quarter: 2011Q1

REPORT INFORMATION
  Report Type: 
  Country: None (occurrence: None)
  Receive Date: 20110307
  Receipt Date: 20110304
  Transmission Date: 20110831
  Serious: Yes (Death, Hospitalization)
  Sender: FDA-Public Use
  Company Number: BR-ABBOTT-11P-020-0709121-00

PATIENT
  Age: 90 Year
  Sex: Male

DRUGS (2)
  1. AMINOVAC [Suspect]
     Indication: PRODUCT USED FOR UNKNOWN INDICATION
  2. HYTRIN [Suspect]
     Indication: PRODUCT USED FOR UNKNOWN INDICATION

REACTIONS (2)
  - CARDIAC DISORDER [None]
  - FEELING ABNORMAL [None]
